FAERS Safety Report 9201794 (Version 1)
Quarter: 2013Q2

REPORT INFORMATION
  Report Type: Spontaneous
  Country: US (occurrence: US)
  Receive Date: 20130401
  Receipt Date: 20130401
  Transmission Date: 20140414
  Serious: Yes (Hospitalization, Other)
  Sender: FDA-Public Use
  Company Number: US-BAYER-2013-037153

PATIENT
  Age: 46 Year
  Sex: Female
  Weight: 97 kg

DRUGS (16)
  1. AVELOX [Suspect]
     Indication: PRODUCT USED FOR UNKNOWN INDICATION
  2. FLOLAN [Suspect]
     Indication: PULMONARY ARTERIAL HYPERTENSION
     Dosage: 29 NG/KG/MIN, CONCENTRATION 45,000 NG/ML PUMP RATE 80 ML/DAY
     Route: 042
  3. BOSENTAN [Concomitant]
  4. ASPIRIN [Concomitant]
  5. SALBUTAMOL SULFATE [Concomitant]
  6. THYROXINE SODIUM [Concomitant]
  7. FERROUS SULFATE [Concomitant]
  8. SPIRONOLACTONE [Concomitant]
  9. FRUSEMIDE [Concomitant]
  10. POTASSIUM CHLORIDE [Concomitant]
  11. LORTAB [Concomitant]
  12. LORAZEPAM [Concomitant]
  13. POTASSIUM [POTASSIUM CHLORIDE] [Concomitant]
  14. OXYGEN [Concomitant]
  15. AZITHROMYCIN [Concomitant]
  16. CO-TRIMOXAZOLE [Concomitant]

REACTIONS (11)
  - Drug interaction [None]
  - Hypotension [None]
  - Dizziness [None]
  - Cyst [None]
  - Furuncle [None]
  - Palpitations [None]
  - Sinusitis [None]
  - Pneumonia [None]
  - Gastroenteritis viral [None]
  - Device related infection [None]
  - Proteus test positive [None]
